FAERS Safety Report 6505034-9 (Version None)
Quarter: 2009Q4

REPORT INFORMATION
  Report Type: 
  Country: None (occurrence: None)
  Receive Date: 20091218
  Receipt Date: 20091210
  Transmission Date: 20100525
  Serious: Yes (Other)
  Sender: FDA-Public Use
  Company Number: BR-ASTRAZENECA-2009SE31449

PATIENT
  Age: 51 Year
  Sex: Male

DRUGS (5)
  1. LOSEC [Suspect]
     Indication: BARRETT'S OESOPHAGUS
     Route: 048
     Dates: start: 20030101
  2. NEXIUM [Suspect]
     Indication: BARRETT'S OESOPHAGUS
     Route: 048
  3. DIGESAN [Concomitant]
     Dates: start: 20040101
  4. BUSCOPAN COMPOUND [Concomitant]
     Dates: start: 20040101
  5. LUFTAL [Concomitant]
     Dates: start: 20040101

REACTIONS (6)
  - EPISTAXIS [None]
  - MOUTH HAEMORRHAGE [None]
  - NAUSEA [None]
  - OESOPHAGITIS [None]
  - REFLUX OESOPHAGITIS [None]
  - VOMITING [None]
